FAERS Safety Report 10486518 (Version 2)
Quarter: 2014Q4

REPORT INFORMATION
  Report Type: Spontaneous
  Country: US (occurrence: US)
  Receive Date: 20141001
  Receipt Date: 20141001
  Transmission Date: 20150528
  Serious: No
  Sender: FDA-Public Use
  Company Number: US-KOWA-2013S1000874

PATIENT
  Age: 72 Year
  Sex: Female
  Weight: 49 kg

DRUGS (6)
  1. PANTOPRAZOLE [Concomitant]
     Active Substance: PANTOPRAZOLE SODIUM
  2. LIVALO [Suspect]
     Active Substance: PITAVASTATIN CALCIUM
     Indication: BLOOD CHOLESTEROL
     Dosage: MON-WEDN-FRI
     Route: 048
     Dates: start: 20130415, end: 20130425
  3. LOPID [Concomitant]
     Active Substance: GEMFIBROZIL
  4. LEVOTHYROXINE [Concomitant]
     Active Substance: LEVOTHYROXINE
     Indication: HYPOTHYROIDISM
  5. METOPROLOL [Concomitant]
     Active Substance: METOPROLOL
  6. LIVALO [Suspect]
     Active Substance: PITAVASTATIN CALCIUM
     Indication: BLOOD CHOLESTEROL
     Route: 048
     Dates: start: 201207, end: 20130325

REACTIONS (3)
  - Muscular weakness [Recovering/Resolving]
  - Myalgia [Recovering/Resolving]
  - Constipation [Recovering/Resolving]

NARRATIVE: CASE EVENT DATE: 2012
